FAERS Safety Report 21822235 (Version 3)
Quarter: 2023Q1

REPORT INFORMATION
  Report Type: Spontaneous
  Country: FR (occurrence: FR)
  Receive Date: 20230105
  Receipt Date: 20230206
  Transmission Date: 20230417
  Serious: Yes (Other)
  Sender: FDA-Public Use
  Company Number: FR-GSKCCFEMEA-Case-01639895_AE-65798

PATIENT

DRUGS (1)
  1. ADVIL [Suspect]
     Active Substance: IBUPROFEN
     Indication: Product used for unknown indication
     Dosage: UNK

REACTIONS (6)
  - Foreign body in throat [Unknown]
  - Odynophagia [Unknown]
  - Oropharyngeal pain [Unknown]
  - Dyspnoea [Unknown]
  - Product use complaint [Unknown]
  - Product complaint [Unknown]
